FAERS Safety Report 15412066 (Version 1)
Quarter: 2018Q3

REPORT INFORMATION
  Report Type: Spontaneous
  Country: US (occurrence: US)
  Receive Date: 20180921
  Receipt Date: 20180921
  Transmission Date: 20181010
  Serious: No
  Sender: FDA-Public Use
  Company Number: US-RECKITT BENCKISER HEALTHCARE INT LIMITED-RB-91085-2017

PATIENT
  Age: 55 Year
  Sex: Female

DRUGS (1)
  1. MUCINEX MAXIMUM STRENGTH [Suspect]
     Active Substance: GUAIFENESIN
     Indication: PRODUCT USED FOR UNKNOWN INDICATION
     Dosage: UNK (TOOK AN EXTRA TABLET)
     Route: 065
     Dates: start: 20170717

REACTIONS (2)
  - Blister [Unknown]
  - Overdose [Unknown]

NARRATIVE: CASE EVENT DATE: 20170717
